FAERS Safety Report 7505382-X (Version None)
Quarter: 2011Q2

REPORT INFORMATION
  Report Type: 
  Country: None (occurrence: None)
  Receive Date: 20110526
  Receipt Date: 20081019
  Transmission Date: 20111010
  Serious: Yes (Other)
  Sender: FDA-Public Use
  Company Number: US-BAYER-200836219NA

PATIENT
  Age: 59 Year
  Sex: Female
  Weight: 79 kg

DRUGS (23)
  1. INSULIN [Concomitant]
     Dosage: 2 UNITS/HOUR
     Route: 042
     Dates: start: 20060406, end: 20060406
  2. TRASYLOL [Suspect]
     Indication: CORONARY REVASCULARISATION
     Dosage: 200 ML LOADING DOSE
     Route: 042
     Dates: start: 20060406, end: 20060406
  3. MOBIC [Concomitant]
  4. THYROXIN [Concomitant]
     Indication: HYPOTHYROIDISM
     Dosage: 50 MICROGRAMS DAILY
     Route: 048
     Dates: start: 20000101
  5. ZIAC [Concomitant]
     Dosage: 10/6.25 MG DAILY
     Route: 048
     Dates: start: 20020101
  6. HEPARIN [Concomitant]
     Dosage: 47,700 UNITS
     Route: 042
     Dates: start: 20060406, end: 20060406
  7. PROPOFOL [Concomitant]
     Dosage: 10-20 MCG/KG/MIN
     Route: 042
     Dates: start: 20060406, end: 20060406
  8. TRASYLOL [Suspect]
     Dosage: 50 ML/HR INFUSION
     Route: 042
     Dates: start: 20060406, end: 20060406
  9. DARVOCET [Concomitant]
  10. CELEBREX [Concomitant]
  11. ALTACE [Concomitant]
     Indication: HYPERTENSION
     Dosage: 10 MG, QD
     Route: 048
     Dates: start: 20040101
  12. CIPRO [Concomitant]
     Dosage: 500 MG TWICE DAILY X 7 DAYS
     Route: 048
     Dates: start: 20060116
  13. NITROFURANTOIN [Concomitant]
     Indication: URINARY TRACT INFECTION
     Dosage: 100 MG TWICE DAILY X 7 DAYS
     Route: 048
     Dates: start: 20060322
  14. NITROGLYCERIN [Concomitant]
     Dosage: 5-15 ML/HOUR
     Route: 042
     Dates: start: 20060406, end: 20060406
  15. TRICOR [Concomitant]
     Dosage: 145 MG DAILY
     Route: 048
     Dates: start: 20000101
  16. RED BLOOD CELLS [Concomitant]
     Dosage: 2 UNITS
     Route: 042
     Dates: start: 20060406
  17. TRASYLOL [Suspect]
     Indication: CORONARY ARTERY BYPASS
     Dosage: 1 ML, ONCE, INTIAL TEST DOSE
     Route: 042
     Dates: start: 20060406, end: 20060406
  18. HYDROCODONE BITARTRATE [Concomitant]
  19. PLAVIX [Concomitant]
     Dosage: 75 MG, QD
     Route: 048
     Dates: start: 20020101
  20. HYZAAR [Concomitant]
     Dosage: UNK
     Dates: start: 20040101
  21. LOTENSIN [Concomitant]
     Dosage: UNK
     Dates: start: 20040101
  22. CEFAZOLIN [Concomitant]
     Dosage: 3 GRAMS
     Route: 042
     Dates: start: 20060406, end: 20060406
  23. FENTANYL [Concomitant]
     Dosage: UNK
     Route: 042
     Dates: start: 20060406, end: 20060406

REACTIONS (14)
  - UNEVALUABLE EVENT [None]
  - VISUAL FIELD DEFECT [None]
  - VISUAL ACUITY REDUCED [None]
  - BALANCE DISORDER [None]
  - AMNESIA [None]
  - PAIN [None]
  - EMOTIONAL DISTRESS [None]
  - DEPRESSION [None]
  - INJURY [None]
  - STRESS [None]
  - HYPOAESTHESIA [None]
  - EMBOLIC STROKE [None]
  - ANXIETY [None]
  - FEAR [None]
